FAERS Safety Report 15464678 (Version 4)
Quarter: 2019Q1

REPORT INFORMATION
  Report Type: Report from Study
  Country: JP (occurrence: JP)
  Receive Date: 20181004
  Receipt Date: 20190329
  Transmission Date: 20190417
  Serious: Yes (Hospitalization, Disabling, Other)
  Sender: FDA-Public Use
  Company Number: JP-ACTELION-A-CH2018-179731

PATIENT
  Age: 72 Year
  Sex: Female

DRUGS (17)
  1. NEXAVAR [Concomitant]
     Active Substance: SORAFENIB
  2. ADCIRCA [Concomitant]
     Active Substance: TADALAFIL
  3. TAKEPRON [Concomitant]
     Active Substance: LANSOPRAZOLE
  4. ALDACTONE A [Concomitant]
     Active Substance: SPIRONOLACTONE
  5. LIVALO [Concomitant]
     Active Substance: PITAVASTATIN CALCIUM
  6. CARELOAD [Concomitant]
     Active Substance: BERAPROST SODIUM
  7. GLUCONSAN K [Concomitant]
     Active Substance: POTASSIUM GLUCONATE
  8. OXYGEN. [Concomitant]
     Active Substance: OXYGEN
  9. OPSUMIT [Suspect]
     Active Substance: MACITENTAN
     Indication: PULMONARY ARTERIAL HYPERTENSION
     Dosage: 10 MG, QD
     Route: 048
     Dates: start: 20160609
  10. FERROUS SULFATE. [Concomitant]
     Active Substance: FERROUS SULFATE
  11. DEPAS (ETIZOLAM) [Concomitant]
     Active Substance: ETIZOLAM
  12. PHELLOBERIN [Concomitant]
     Active Substance: BERBERINE\GERANIUM
  13. THYRADIN [Concomitant]
     Active Substance: LEVOTHYROXINE
  14. FOSAMAC [Concomitant]
     Active Substance: ALENDRONATE SODIUM
  15. LUPRAC [Concomitant]
     Active Substance: TORSEMIDE
  16. PREDNISOLONE. [Concomitant]
     Active Substance: PREDNISOLONE
  17. MERISLON [Concomitant]
     Active Substance: BETAHISTINE MESILATE

REACTIONS (8)
  - Rib fracture [Recovered/Resolved]
  - Fall [Recovered/Resolved]
  - Arthralgia [Recovered/Resolved]
  - Back pain [Recovered/Resolved]
  - Osteonecrosis [Recovered/Resolved]
  - Hip arthroplasty [Unknown]
  - White blood cell count increased [Recovered/Resolved]
  - Intervertebral disc protrusion [Recovered/Resolved]

NARRATIVE: CASE EVENT DATE: 201708
